FAERS Safety Report 7767735-4 (Version None)
Quarter: 2011Q3

REPORT INFORMATION
  Report Type: 
  Country: None (occurrence: None)
  Receive Date: 20110922
  Receipt Date: 20100915
  Transmission Date: 20111222
  Serious: No
  Sender: FDA-Public Use
  Company Number: US-ASTRAZENECA-2008UW28831

PATIENT
  Age: 43 Year
  Sex: Male
  Weight: 135.2 kg

DRUGS (7)
  1. TRAZODONE HYDROCHLORIDE [Concomitant]
     Indication: DEPRESSION
     Dates: start: 19950101
  2. ZYPREXA [Suspect]
     Dosage: 5-20 MG
     Dates: start: 19970101, end: 20000101
  3. ZYPREXA [Suspect]
  4. SEROQUEL [Suspect]
     Indication: BIPOLAR DISORDER
     Route: 048
     Dates: start: 19980701, end: 19980901
  5. RISPERDAL [Suspect]
     Dates: start: 19960101
  6. VENLAFAXINE HYDROCHLORIDE [Concomitant]
     Indication: BIPOLAR DISORDER
     Dates: start: 19980101
  7. RISPERDAL [Suspect]
     Dates: start: 19961001, end: 19970701

REACTIONS (6)
  - TYPE 2 DIABETES MELLITUS [None]
  - BLOOD CHOLESTEROL INCREASED [None]
  - CARDIAC FAILURE CONGESTIVE [None]
  - HYPERLIPIDAEMIA [None]
  - OBESITY [None]
  - SPINAL COLUMN STENOSIS [None]
